FAERS Safety Report 4627319-3 (Version None)
Quarter: 2005Q1

REPORT INFORMATION
  Report Type: 
  Country: None (occurrence: None)
  Receive Date: 20050331
  Receipt Date: 20050322
  Transmission Date: 20050727
  Serious: Yes (Hospitalization)
  Sender: FDA-Public Use
  Company Number: US014892

PATIENT
  Age: 29 Year
  Sex: Female

DRUGS (8)
  1. PROVIGIL [Suspect]
     Indication: HYPERSOMNIA
  2. PROVIGIL [Suspect]
     Indication: HYPERSOMNIA
     Dosage: 600 MG QD ORAL
     Route: 048
     Dates: start: 20041101, end: 20050314
  3. VASOPRESSIN [Concomitant]
  4. GROWTH HORMONE [Concomitant]
  5. RITALIN [Concomitant]
  6. THYROID HORMONES [Concomitant]
  7. CORTISOL [Concomitant]
  8. BIRTH CONTROL PILL [Concomitant]

REACTIONS (10)
  - BLOOD GLUCOSE DECREASED [None]
  - BRADYCARDIA [None]
  - COMA [None]
  - CONFUSIONAL STATE [None]
  - COORDINATION ABNORMAL [None]
  - DEPRESSED LEVEL OF CONSCIOUSNESS [None]
  - PANCYTOPENIA [None]
  - POST PROCEDURAL COMPLICATION [None]
  - RASH [None]
  - VISUAL DISTURBANCE [None]
